FAERS Safety Report 21467195 (Version 2)
Quarter: 2022Q4

REPORT INFORMATION
  Report Type: Report from Study
  Country: US (occurrence: US)
  Receive Date: 20221017
  Receipt Date: 20221021
  Transmission Date: 20230112
  Serious: No
  Sender: FDA-Public Use
  Company Number: US-KYOWAKIRIN-2022BKK016073

PATIENT

DRUGS (1)
  1. SANCUSO [Suspect]
     Active Substance: GRANISETRON
     Indication: Impaired gastric emptying
     Dosage: APPLY AND WEAR FOR 7 DAYS
     Route: 065

REACTIONS (2)
  - Product use in unapproved indication [Unknown]
  - Product adhesion issue [Unknown]
